FAERS Safety Report 5567061-8 (Version None)
Quarter: 2007Q4

REPORT INFORMATION
  Report Type: 
  Country: None (occurrence: None)
  Receive Date: 20071219
  Receipt Date: 20060417
  Transmission Date: 20080405
  Serious: Yes (Death, Other)
  Sender: FDA-Public Use
  Company Number: JP-ROCHE-442117

PATIENT
  Age: 49 Year
  Sex: Male

DRUGS (4)
  1. VALGANCICLOVIR HCL [Suspect]
     Route: 065
     Dates: start: 20050301, end: 20050414
  2. SULFAMETHOXAZOLE AND TRIMETHOPRIM [Concomitant]
     Dosage: SWITCHED TO PENTAMIDINE.
     Dates: end: 20050324
  3. PREDNISOLONE [Concomitant]
     Route: 048
     Dates: start: 20050324
  4. PENTAMIDINE ISETHIONATE [Concomitant]

REACTIONS (2)
  - CYTOMEGALOVIRUS CHORIORETINITIS [None]
  - WHITE BLOOD CELL COUNT DECREASED [None]
